FAERS Safety Report 4328664-1 (Version None)
Quarter: 2004Q1

REPORT INFORMATION
  Report Type: 
  Country: None (occurrence: None)
  Receive Date: 20040324
  Receipt Date: 20040308
  Transmission Date: 20041129
  Serious: Yes (Disabling, Other)
  Sender: FDA-Public Use
  Company Number: 235454

PATIENT
  Age: 77 Year
  Sex: Male
  Weight: 77 kg

DRUGS (5)
  1. NOVOSEVEN [Suspect]
     Indication: CEREBRAL HAEMORRHAGE
     Dosage: 80 UG/KG, INTRAVENOUS
     Route: 042
     Dates: start: 20031104, end: 20031104
  2. MOVICOL (MARCROGOL, POTASSIUM CHLORIDE, SODIUM BICARBONATE, SODIUM CHL [Concomitant]
  3. SALURES (BENDROFLUMETHIAZIDE) [Concomitant]
  4. RAMIPRIL [Concomitant]
  5. ZOPICLONE (ZOPICLONE) [Concomitant]

REACTIONS (4)
  - BLINDNESS UNILATERAL [None]
  - DEEP VEIN THROMBOSIS [None]
  - RETINAL HAEMORRHAGE [None]
  - RETINAL VEIN THROMBOSIS [None]
